FAERS Safety Report 16352153 (Version 2)
Quarter: 2019Q2

REPORT INFORMATION
  Report Type: Report from Study
  Country: BE (occurrence: BE)
  Receive Date: 20190524
  Receipt Date: 20190606
  Transmission Date: 20190711
  Serious: Yes (Other)
  Sender: FDA-Public Use
  Company Number: BE-AUROBINDO-AUR-APL-2019-029159

PATIENT

DRUGS (12)
  1. IMIPENEM [Suspect]
     Active Substance: IMIPENEM
     Indication: LUNG INFECTION
  2. CLOFAZIMINE [Suspect]
     Active Substance: CLOFAZIMINE
     Indication: LUNG INFECTION
  3. IMIPENEM [Suspect]
     Active Substance: IMIPENEM
     Indication: MYCOBACTERIAL INFECTION
     Dosage: DOSAGE FORM: UNSPECIFIED
     Route: 042
  4. IMIPENEM [Suspect]
     Active Substance: IMIPENEM
     Indication: SALVAGE THERAPY
  5. CLOFAZIMINE [Suspect]
     Active Substance: CLOFAZIMINE
     Indication: MYCOBACTERIAL INFECTION
     Dosage: DOSAGE FORM: UNSPECIFIED
     Route: 048
  6. BEDAQUILINE [Suspect]
     Active Substance: BEDAQUILINE
     Indication: SALVAGE THERAPY
  7. TIGECYCLINE. [Suspect]
     Active Substance: TIGECYCLINE
     Indication: MYCOBACTERIAL INFECTION
     Dosage: DOSAGE FORM: UNSPECIFIED
     Route: 042
  8. TIGECYCLINE. [Suspect]
     Active Substance: TIGECYCLINE
     Indication: LUNG INFECTION
  9. AZITHROMYCIN ANHYDROUS. [Suspect]
     Active Substance: AZITHROMYCIN ANHYDROUS
     Indication: MYCOBACTERIAL INFECTION
     Dosage: DOSAGE FORM: UNSPECIFIED
     Route: 048
  10. AZITHROMYCIN ANHYDROUS. [Suspect]
     Active Substance: AZITHROMYCIN ANHYDROUS
     Indication: SALVAGE THERAPY
  11. CLOFAZIMINE [Suspect]
     Active Substance: CLOFAZIMINE
     Indication: SALVAGE THERAPY
  12. BEDAQUILINE [Suspect]
     Active Substance: BEDAQUILINE
     Indication: MYCOBACTERIAL INFECTION
     Dosage: UNK
     Route: 048

REACTIONS (6)
  - Hepatotoxicity [Unknown]
  - Deafness [Unknown]
  - Nausea [Unknown]
  - Product use in unapproved indication [Unknown]
  - Vomiting [Unknown]
  - Off label use [Unknown]
